FAERS Safety Report 7058256-5 (Version None)
Quarter: 2010Q4

REPORT INFORMATION
  Report Type: 
  Country: None (occurrence: None)
  Receive Date: 20101022
  Receipt Date: 20101013
  Transmission Date: 20110411
  Serious: Yes (Other)
  Sender: FDA-Public Use
  Company Number: US-JNJFOC-20100706072

PATIENT
  Sex: Female
  Weight: 63.5 kg

DRUGS (2)
  1. ELMIRON [Suspect]
     Indication: CYSTITIS INTERSTITIAL
     Route: 048
  2. ELMIRON [Suspect]
     Indication: BLADDER PAIN
     Route: 048

REACTIONS (15)
  - BACK PAIN [None]
  - BRAIN INJURY [None]
  - BREAST PAIN [None]
  - CHEST PAIN [None]
  - DRUG INEFFECTIVE [None]
  - DRUG TOXICITY [None]
  - IMPAIRED WORK ABILITY [None]
  - MIGRAINE [None]
  - MUSCLE TWITCHING [None]
  - MUSCULOSKELETAL STIFFNESS [None]
  - NERVE INJURY [None]
  - NERVOUS SYSTEM DISORDER [None]
  - NEURITIS [None]
  - PAIN [None]
  - PAIN IN EXTREMITY [None]
